FAERS Safety Report 8342347-2 (Version None)
Quarter: 2012Q2

REPORT INFORMATION
  Report Type: 
  Country: None (occurrence: None)
  Receive Date: 20120508
  Receipt Date: 20120503
  Transmission Date: 20120825
  Serious: Yes (Hospitalization)
  Sender: FDA-Public Use
  Company Number: US-AMGEN-USASP2011069295

PATIENT
  Sex: Female

DRUGS (7)
  1. TAXOTERE [Concomitant]
     Indication: INFLAMMATORY CARCINOMA OF THE BREAST
     Dosage: UNK UNK, Q3WK
  2. TYLENOL (CAPLET) [Concomitant]
     Indication: PRODUCT USED FOR UNKNOWN INDICATION
  3. ZOFRAN [Concomitant]
     Indication: PRODUCT USED FOR UNKNOWN INDICATION
  4. COMPAZINE [Concomitant]
     Indication: PRODUCT USED FOR UNKNOWN INDICATION
  5. CYTOXAN [Concomitant]
     Indication: INFLAMMATORY CARCINOMA OF THE BREAST
     Dosage: UNK UNK, Q3WK
  6. NEULASTA [Suspect]
     Indication: NEUTROPENIA
     Dates: start: 20111026
  7. DEXAMETHASONE [Concomitant]
     Indication: PRODUCT USED FOR UNKNOWN INDICATION

REACTIONS (14)
  - DYSSTASIA [None]
  - HYPERSENSITIVITY [None]
  - ERYTHEMA [None]
  - ACUTE RESPIRATORY DISTRESS SYNDROME [None]
  - CHILLS [None]
  - PYREXIA [None]
  - TREMOR [None]
  - INFECTION [None]
  - SKIN DISORDER [None]
  - ASTHENIA [None]
  - BONE PAIN [None]
  - DEHYDRATION [None]
  - BREAST DISORDER [None]
  - DYSPNOEA [None]
